FAERS Safety Report 14513520 (Version 2)
Quarter: 2018Q1

REPORT INFORMATION
  Report Type: Spontaneous
  Country: US (occurrence: US)
  Receive Date: 20180209
  Receipt Date: 20180223
  Transmission Date: 20180509
  Serious: Yes (Death, Hospitalization)
  Sender: FDA-Public Use
  Company Number: US-TAIHO ONCOLOGY INC-EU-2018-00136

PATIENT
  Age: 75 Year
  Sex: Male

DRUGS (11)
  1. DILTIAZEM. [Concomitant]
     Active Substance: DILTIAZEM
     Dosage: NI
  2. LASIX [Concomitant]
     Active Substance: FUROSEMIDE
     Dosage: NI
  3. LOSARTAN. [Concomitant]
     Active Substance: LOSARTAN
     Dosage: NI
  4. OMEPRAZOLE. [Concomitant]
     Active Substance: OMEPRAZOLE
     Dosage: NI
  5. LONSURF [Suspect]
     Active Substance: TIPIRACIL HYDROCHLORIDE\TRIFLURIDINE
     Indication: COLON CANCER
     Route: 048
     Dates: start: 20180103
  6. NORCO [Concomitant]
     Active Substance: ACETAMINOPHEN\HYDROCODONE BITARTRATE
     Dosage: NI
  7. ATORVASTATIN [Concomitant]
     Active Substance: ATORVASTATIN
     Dosage: NI
  8. STIOLTO RESPIMAT [Concomitant]
     Active Substance: OLODATEROL HYDROCHLORIDE\TIOTROPIUM BROMIDE MONOHYDRATE
     Dosage: NI
  9. OXYCODONE [Concomitant]
     Active Substance: OXYCODONE
     Dosage: NI
  10. RITALIN [Concomitant]
     Active Substance: METHYLPHENIDATE HYDROCHLORIDE
     Dosage: NI
  11. GABAPENTIN. [Concomitant]
     Active Substance: GABAPENTIN
     Dosage: NI

REACTIONS (6)
  - Transaminases increased [Fatal]
  - Sepsis [Fatal]
  - Renal failure [Fatal]
  - Failure to thrive [Fatal]
  - Disease progression [Fatal]
  - Anaemia [Fatal]

NARRATIVE: CASE EVENT DATE: 20180119
